FAERS Safety Report 7740779-4 (Version None)
Quarter: 2011Q3

REPORT INFORMATION
  Report Type: 
  Country: None (occurrence: None)
  Receive Date: 20110909
  Receipt Date: 20110601
  Transmission Date: 20111222
  Serious: Yes (Hospitalization, Other)
  Sender: FDA-Public Use
  Company Number: HR-TYCO HEALTHCARE/MALLINCKRODT-T201101660

PATIENT

DRUGS (2)
  1. HEROIN [Suspect]
     Dosage: UNK
  2. METHADOSE [Suspect]
     Dosage: UNK
     Route: 048

REACTIONS (2)
  - DRUG WITHDRAWAL SYNDROME NEONATAL [None]
  - MATERNAL EXPOSURE DURING PREGNANCY [None]
